FAERS Safety Report 8189164-4 (Version None)
Quarter: 2012Q1

REPORT INFORMATION
  Report Type: 
  Country: None (occurrence: None)
  Receive Date: 20120306
  Receipt Date: 20120306
  Transmission Date: 20120608
  Serious: No
  Sender: FDA-Public Use
  Company Number: None

PATIENT
  Age: 73 Year
  Sex: Female
  Weight: 86.1834 kg

DRUGS (1)
  1. VESICARE [Suspect]
     Indication: BLADDER DISORDER
     Dates: start: 20111221, end: 20111224

REACTIONS (1)
  - URTICARIA [None]
